FAERS Safety Report 10767170 (Version 2)
Quarter: 2015Q1

REPORT INFORMATION
  Report Type: Spontaneous
  Country: NL (occurrence: NL)
  Receive Date: 20150205
  Receipt Date: 20150311
  Transmission Date: 20150721
  Serious: Yes (Life-Threatening, Hospitalization)
  Sender: FDA-Public Use
  Company Number: NL-GE HEALTHCARE MEDICAL DIAGNOSTICS-VISP-PR-1501S-0022

PATIENT
  Age: 78 Year
  Sex: Female
  Weight: 77 kg

DRUGS (6)
  1. THYRAX [Concomitant]
     Active Substance: LEVOTHYROXINE
  2. TAMOXIFEN [Concomitant]
     Active Substance: TAMOXIFEN
  3. VISIPAQUE [Suspect]
     Active Substance: IODIXANOL
     Indication: THERAPEUTIC PROCEDURE
  4. ACETYLSALICYLZUUR [Concomitant]
  5. VISIPAQUE [Suspect]
     Active Substance: IODIXANOL
     Indication: ILIAC ARTERY OCCLUSION
     Route: 065
     Dates: start: 20150123, end: 20150123
  6. PERSANTIN [Concomitant]
     Active Substance: DIPYRIDAMOLE

REACTIONS (3)
  - Pneumonia [Unknown]
  - Anaphylactic shock [Recovered/Resolved with Sequelae]
  - Cardiac arrest [Recovered/Resolved with Sequelae]

NARRATIVE: CASE EVENT DATE: 20150123
